FAERS Safety Report 11537875 (Version 1)
Quarter: 2015Q3

REPORT INFORMATION
  Report Type: Spontaneous
  Country: US (occurrence: KR)
  Receive Date: 20150922
  Receipt Date: 20150922
  Transmission Date: 20151125
  Serious: Yes (Other)
  Sender: FDA-Public Use
  Company Number: KR-B.I. PHARMACEUTICALS,INC./RIDGEFIELD-2015-BI-51353BI

PATIENT
  Age: 10 Year
  Sex: Male

DRUGS (7)
  1. ATROVENT [Suspect]
     Active Substance: IPRATROPIUM BROMIDE
     Indication: RHINITIS
     Route: 065
  2. CORTICOSTEROIDS [Concomitant]
     Active Substance: CORTICOSTEROID NOS
     Indication: RHINITIS
     Route: 055
  3. MONTELUKAST [Concomitant]
     Active Substance: MONTELUKAST SODIUM
     Indication: RHINITIS
     Route: 065
  4. FEXOFENADINE [Concomitant]
     Active Substance: FEXOFENADINE\FEXOFENADINE HYDROCHLORIDE
     Indication: RHINITIS
     Route: 065
  5. SALMETEROL [Concomitant]
     Active Substance: SALMETEROL
     Indication: RHINITIS
     Route: 065
  6. LEVALBUTEROL. [Concomitant]
     Active Substance: LEVALBUTEROL
     Indication: RHINITIS
     Route: 065
  7. PREDNISONE. [Suspect]
     Active Substance: PREDNISONE
     Indication: RHINITIS
     Route: 048

REACTIONS (1)
  - Diffuse panbronchiolitis [Unknown]
